FAERS Safety Report 23804201 (Version 1)
Quarter: 2024Q2

REPORT INFORMATION
  Report Type: Spontaneous
  Country: US (occurrence: US)
  Receive Date: 20240501
  Receipt Date: 20240501
  Transmission Date: 20240716
  Serious: No
  Sender: FDA-Public Use
  Company Number: US-ELI_LILLY_AND_COMPANY-US202404019121

PATIENT
  Age: 74 Year
  Sex: Female

DRUGS (1)
  1. TERIPARATIDE [Suspect]
     Active Substance: TERIPARATIDE
     Indication: Osteoporosis
     Dosage: UNK UNK, UNKNOWN
     Route: 058
     Dates: start: 20240402, end: 20240420

REACTIONS (9)
  - Limb discomfort [Recovering/Resolving]
  - Insomnia [Recovering/Resolving]
  - Gait disturbance [Recovering/Resolving]
  - Vulvovaginal swelling [Recovering/Resolving]
  - Vulvovaginal pruritus [Recovering/Resolving]
  - Chest discomfort [Recovering/Resolving]
  - Feeling abnormal [Recovering/Resolving]
  - Fatigue [Recovering/Resolving]
  - Urticaria [Recovering/Resolving]
